FAERS Safety Report 8904417 (Version 4)
Quarter: 2013Q2

REPORT INFORMATION
  Report Type: Spontaneous
  Country: US (occurrence: US)
  Receive Date: 20121112
  Receipt Date: 20130506
  Transmission Date: 20140414
  Serious: Yes (Hospitalization, Other)
  Sender: FDA-Public Use
  Company Number: US-009507513-1211USA003074

PATIENT
  Sex: Female
  Weight: 81.63 kg

DRUGS (2)
  1. NUVARING [Suspect]
     Indication: CONTRACEPTION
     Dosage: UNK
     Route: 067
     Dates: start: 20080602, end: 20101104
  2. PROAIR (ALBUTEROL SULFATE) [Concomitant]
     Indication: ASTHMA
     Dosage: UNK

REACTIONS (11)
  - Vena cava filter insertion [Unknown]
  - Pulmonary embolism [Recovered/Resolved]
  - Deep vein thrombosis [Not Recovered/Not Resolved]
  - Thrombosis [Unknown]
  - Plantar fasciitis [Unknown]
  - Haemorrhoid operation [Unknown]
  - Breast lump removal [Unknown]
  - Sleep apnoea syndrome [Unknown]
  - Sinusitis [Unknown]
  - Exostosis [Unknown]
  - Rhinitis allergic [Unknown]
